FAERS Safety Report 16608003 (Version 1)
Quarter: 2019Q3

REPORT INFORMATION
  Report Type: Spontaneous
  Country: GB (occurrence: GB)
  Receive Date: 20190722
  Receipt Date: 20190722
  Transmission Date: 20191004
  Serious: Yes (Disabling)
  Sender: FDA-Public Use
  Company Number: GB-ACCORD-144184

PATIENT
  Age: 74 Year
  Sex: Male
  Weight: 72 kg

DRUGS (3)
  1. ETOPOSIDE. [Concomitant]
     Active Substance: ETOPOSIDE
     Indication: PANCREATIC CARCINOMA
     Dates: start: 201901
  2. CISPLATIN. [Suspect]
     Active Substance: CISPLATIN
     Indication: PANCREATIC CARCINOMA
     Route: 042
     Dates: start: 201901, end: 20190423
  3. LANREOTIDE/LANREOTIDE ACETATE [Concomitant]
     Indication: PANCREATIC CARCINOMA
     Dates: start: 201901

REACTIONS (3)
  - Off label use [Unknown]
  - Choroidal effusion [Recovering/Resolving]
  - Visual acuity reduced [Not Recovered/Not Resolved]

NARRATIVE: CASE EVENT DATE: 20190403
